FAERS Safety Report 7113106-3 (Version None)
Quarter: 2010Q4

REPORT INFORMATION
  Report Type: 
  Country: None (occurrence: None)
  Receive Date: 20101119
  Receipt Date: 20101110
  Transmission Date: 20110411
  Serious: Yes (Other)
  Sender: FDA-Public Use
  Company Number: US-ELI_LILLY_AND_COMPANY-US201011003307

PATIENT
  Age: 80 Year
  Sex: Male

DRUGS (3)
  1. EFFIENT [Suspect]
     Indication: THROMBOSIS IN DEVICE
     Dosage: 60 MG, LOADING DOSE
     Dates: start: 20101109, end: 20101110
  2. ASPIRIN [Concomitant]
  3. LASIX [Concomitant]
     Dosage: 75 MG, UNK

REACTIONS (2)
  - RETROPERITONEAL HAEMATOMA [None]
  - THROMBOSIS [None]
